FAERS Safety Report 23167142 (Version 1)
Quarter: 2023Q4

REPORT INFORMATION
  Report Type: Report from Study
  Country: ME (occurrence: ME)
  Receive Date: 20231109
  Receipt Date: 20231109
  Transmission Date: 20240110
  Serious: Yes (Hospitalization, Other)
  Sender: FDA-Public Use
  Company Number: ME-TAKEDA-2023TUS109144

PATIENT
  Age: 36 Year
  Sex: Male
  Weight: 82 kg

DRUGS (3)
  1. VEDOLIZUMAB [Suspect]
     Active Substance: VEDOLIZUMAB
     Indication: Colitis ulcerative
     Dosage: 300 MILLIGRAM
     Route: 042
     Dates: start: 20220314, end: 20220701
  2. Salofalk [Concomitant]
     Indication: Colitis ulcerative
     Dosage: UNK
     Dates: start: 20220131
  3. RIFAXIMIN [Concomitant]
     Active Substance: RIFAXIMIN
     Indication: Colitis ulcerative
     Dosage: UNK
     Route: 048
     Dates: start: 20220701, end: 20220708

REACTIONS (2)
  - Colitis ulcerative [Recovering/Resolving]
  - Therapeutic response decreased [Recovering/Resolving]
